FAERS Safety Report 20031689 (Version 1)
Quarter: 2021Q4

REPORT INFORMATION
  Report Type: Report from Study
  Country: CA (occurrence: CA)
  Receive Date: 20211103
  Receipt Date: 20211103
  Transmission Date: 20220303
  Serious: Yes (Hospitalization)
  Sender: FDA-Public Use
  Company Number: CA-ABBVIE-21K-028-4142827-00

PATIENT
  Sex: Female

DRUGS (1)
  1. HUMIRA [Suspect]
     Active Substance: ADALIMUMAB
     Indication: Crohn^s disease
     Route: 058
     Dates: start: 20130927

REACTIONS (5)
  - Abdominal pain [Unknown]
  - Gastrointestinal inflammation [Unknown]
  - Infection [Unknown]
  - Back disorder [Unknown]
  - Abscess [Unknown]

NARRATIVE: CASE EVENT DATE: 20210101
